FAERS Safety Report 20214763 (Version 3)
Quarter: 2022Q2

REPORT INFORMATION
  Report Type: Spontaneous
  Country: JP (occurrence: JP)
  Receive Date: 20211222
  Receipt Date: 20220619
  Transmission Date: 20220721
  Serious: Yes (Hospitalization)
  Sender: FDA-Public Use
  Company Number: JP-NOVARTISPH-NVSJ2021JP020851

PATIENT
  Age: 89 Year
  Sex: Female
  Weight: 39 kg

DRUGS (10)
  1. ENTRESTO [Suspect]
     Active Substance: SACUBITRIL\VALSARTAN
     Indication: Cardiac failure chronic
     Dosage: 50 MG, BID
     Route: 048
     Dates: start: 20210707, end: 20210817
  2. ENTRESTO [Suspect]
     Active Substance: SACUBITRIL\VALSARTAN
     Dosage: 100 MG, BID
     Route: 048
     Dates: start: 20210818, end: 20211201
  3. LANSOPRAZOLE [Concomitant]
     Active Substance: LANSOPRAZOLE
     Indication: Product used for unknown indication
     Dosage: 15 MG, QD
     Route: 048
     Dates: start: 20141021
  4. MEMANTINE HYDROCHLORIDE [Concomitant]
     Active Substance: MEMANTINE HYDROCHLORIDE
     Indication: Product used for unknown indication
     Dosage: 20 MG, QD
     Route: 048
     Dates: start: 20200710
  5. TORSEMIDE [Concomitant]
     Active Substance: TORSEMIDE
     Indication: Product used for unknown indication
     Dosage: 8 MG, QD
     Route: 048
     Dates: start: 20201204
  6. CARDENALIN [Concomitant]
     Active Substance: DOXAZOSIN MESYLATE
     Indication: Product used for unknown indication
     Dosage: 8 MG, QD
     Route: 048
     Dates: start: 20210219
  7. ARICEPT [Concomitant]
     Active Substance: DONEPEZIL HYDROCHLORIDE
     Indication: Product used for unknown indication
     Dosage: 3 MG, QD
     Route: 048
     Dates: start: 20210610
  8. EPHEDRA SINICA STEM\HERBALS [Concomitant]
     Active Substance: EPHEDRA SINICA STEM\HERBALS
     Indication: Product used for unknown indication
     Dosage: 3 G, TID
     Route: 048
     Dates: start: 20211028
  9. BISOPROLOL FUMARATE [Concomitant]
     Active Substance: BISOPROLOL FUMARATE
     Indication: Product used for unknown indication
     Dosage: 0.625 MG, QD
     Route: 048
     Dates: end: 20210818
  10. BISOPROLOL FUMARATE [Concomitant]
     Active Substance: BISOPROLOL FUMARATE
     Dosage: 0.625 MG, QD
     Route: 048
     Dates: start: 20220120

REACTIONS (5)
  - Cerebral infarction [Recovered/Resolved with Sequelae]
  - Dizziness [Unknown]
  - Paralysis [Unknown]
  - Balance disorder [Recovered/Resolved]
  - Blood pressure decreased [Unknown]

NARRATIVE: CASE EVENT DATE: 20211129
